FAERS Safety Report 4784135-X (Version None)
Quarter: 2005Q3

REPORT INFORMATION
  Report Type: 
  Country: None (occurrence: None)
  Receive Date: 20050930
  Receipt Date: 20050714
  Transmission Date: 20060218
  Serious: No
  Sender: FDA-Public Use
  Company Number: US-GLAXOSMITHKLINE-A0566245A

PATIENT
  Age: 80 Year
  Sex: Male

DRUGS (9)
  1. FLOVENT [Suspect]
     Indication: EMPHYSEMA
     Dosage: 2PUFF TWICE PER DAY
     Route: 055
     Dates: start: 20050521, end: 20050524
  2. LEVOXYL [Concomitant]
  3. ATENOLOL [Concomitant]
  4. ACIPHEX [Concomitant]
  5. PAXIL [Concomitant]
  6. ALBUTEROL [Concomitant]
  7. IPRATROPIUM BROMIDE [Concomitant]
  8. PULMICORT [Concomitant]
  9. TYLENOL (CAPLET) [Concomitant]

REACTIONS (2)
  - DYSPNOEA [None]
  - HEADACHE [None]
